FAERS Safety Report 24261482 (Version 2)
Quarter: 2024Q3

REPORT INFORMATION
  Report Type: Spontaneous
  Country: US (occurrence: US)
  Receive Date: 20240829
  Receipt Date: 20240829
  Transmission Date: 20241016
  Serious: Yes (Other)
  Sender: ROCHE
  Company Number: US-ROCHE-10000067849

PATIENT
  Age: 62 Year
  Sex: Female

DRUGS (2)
  1. TNKASE [Suspect]
     Active Substance: TENECTEPLASE
     Indication: Ischaemic stroke
     Route: 065
     Dates: start: 20230307, end: 20230307
  2. TNKASE [Suspect]
     Active Substance: TENECTEPLASE
     Route: 065
     Dates: start: 20240716

REACTIONS (4)
  - Lip swelling [Unknown]
  - Off label use [Unknown]
  - Urticaria [Unknown]
  - Angioedema [Recovered/Resolved]

NARRATIVE: CASE EVENT DATE: 20230307
